FAERS Safety Report 5192562-4 (Version None)
Quarter: 2006Q4

REPORT INFORMATION
  Report Type: 
  Country: None (occurrence: None)
  Receive Date: 20061220
  Receipt Date: 20061214
  Transmission Date: 20070319
  Serious: Yes (Death, Disabling)
  Sender: FDA-Public Use
  Company Number: 163-21880-06100480

PATIENT
  Age: 53 Year
  Sex: Female

DRUGS (1)
  1. REVLIMID [Suspect]
     Indication: MULTIPLE MYELOMA
     Dosage: 5 MG - 10 MG, DAILY, ORAL
     Route: 048
     Dates: start: 20060601, end: 20060101

REACTIONS (1)
  - BLOOD TEST ABNORMAL [None]
